FAERS Safety Report 24773051 (Version 3)
Quarter: 2025Q1

REPORT INFORMATION
  Report Type: Report from Study
  Country: US (occurrence: US)
  Receive Date: 20241225
  Receipt Date: 20250218
  Transmission Date: 20250409
  Serious: Yes (Hospitalization)
  Sender: ABBVIE
  Company Number: US-ABBVIE-6060261

PATIENT
  Age: 71 Year
  Sex: Female
  Weight: 54 kg

DRUGS (12)
  1. RINVOQ [Suspect]
     Active Substance: UPADACITINIB
     Indication: Rheumatoid arthritis
     Dosage: FORM STRENGTH: 15MG
     Route: 048
     Dates: start: 20230801, end: 20241204
  2. ESTROGENS\METHYLTESTOSTERONE [Concomitant]
     Active Substance: ESTROGENS\METHYLTESTOSTERONE
     Indication: Hormone replacement therapy
     Route: 048
  3. PROGESTERONE [Concomitant]
     Active Substance: PROGESTERONE
     Indication: Hormone replacement therapy
  4. ZYRTEC [Concomitant]
     Active Substance: CETIRIZINE HYDROCHLORIDE
     Indication: Seasonal allergy
     Dosage: 10 MG
     Route: 048
  5. ACYCLOVIR [Concomitant]
     Active Substance: ACYCLOVIR
     Indication: Cytomegalovirus infection
  6. ACYCLOVIR [Concomitant]
     Active Substance: ACYCLOVIR
     Indication: Cytomegalovirus infection
  7. TRIAMCINOLONE [Concomitant]
     Active Substance: TRIAMCINOLONE
     Indication: Rash
  8. TRIAMCINOLONE [Concomitant]
     Active Substance: TRIAMCINOLONE
     Indication: Rash
  9. METHOTREXATE [Concomitant]
     Active Substance: METHOTREXATE
     Indication: Rheumatoid arthritis
     Route: 048
     Dates: start: 2021, end: 20241205
  10. VALGANCICLOVIR [Concomitant]
     Active Substance: VALGANCICLOVIR
     Indication: Product used for unknown indication
  11. ESTRADIOL [Concomitant]
     Active Substance: ESTRADIOL
     Indication: Hormone replacement therapy
  12. FOLIC ACID [Concomitant]
     Active Substance: FOLIC ACID
     Indication: Product used for unknown indication

REACTIONS (11)
  - Cytomegalovirus infection [Recovering/Resolving]
  - Transient acantholytic dermatosis [Recovering/Resolving]
  - Rash [Recovering/Resolving]
  - Pyrexia [Not Recovered/Not Resolved]
  - Epstein-Barr virus infection [Recovered/Resolved]
  - Gait disturbance [Unknown]
  - Hepatic enzyme increased [Recovering/Resolving]
  - Fatigue [Unknown]
  - Malaise [Unknown]
  - Chromaturia [Unknown]
  - Pain [Unknown]

NARRATIVE: CASE EVENT DATE: 20231101
